FAERS Safety Report 19110322 (Version 1)
Quarter: 2021Q2

REPORT INFORMATION
  Report Type: Spontaneous
  Country: US (occurrence: US)
  Receive Date: 20210409
  Receipt Date: 20210409
  Transmission Date: 20210717
  Serious: Yes (Other)
  Sender: FDA-Public Use
  Company Number: US-SA-2021SA114995

PATIENT
  Age: 61 Year
  Sex: Female

DRUGS (1)
  1. ZANTAC [Suspect]
     Active Substance: RANITIDINE HYDROCHLORIDE
     Dosage: 75 MG, QW
     Dates: start: 201301, end: 201805

REACTIONS (3)
  - Brain neoplasm malignant [Unknown]
  - Lung neoplasm malignant [Unknown]
  - Renal cancer [Unknown]

NARRATIVE: CASE EVENT DATE: 20180701
